FAERS Safety Report 24415148 (Version 1)
Quarter: 2024Q4

REPORT INFORMATION
  Report Type: Spontaneous
  Country: US (occurrence: US)
  Receive Date: 20241009
  Receipt Date: 20241009
  Transmission Date: 20250114
  Serious: No
  Sender: CSL BEHRING
  Company Number: US-BEH-2024180929

PATIENT
  Age: 52 Year
  Sex: Female

DRUGS (46)
  1. HIZENTRA [Suspect]
     Active Substance: HUMAN IMMUNOGLOBULIN G
     Indication: Immunodeficiency
     Dosage: 4 GM/20 ML
     Route: 058
     Dates: start: 20240927
  2. HIZENTRA [Suspect]
     Active Substance: HUMAN IMMUNOGLOBULIN G
     Dosage: 10 GM/50 ML
     Route: 058
     Dates: start: 20240927
  3. ACETAMINOPHEN [Concomitant]
     Active Substance: ACETAMINOPHEN
  4. ACYCLOVIR [Concomitant]
     Active Substance: ACYCLOVIR
  5. ALBUTEROL SULFATE [Concomitant]
     Active Substance: ALBUTEROL SULFATE
  6. ALPRAZOLAM [Concomitant]
     Active Substance: ALPRAZOLAM
  7. AZITHROMYCIN [Concomitant]
     Active Substance: AZITHROMYCIN
  8. BOOSTRIX [Concomitant]
     Active Substance: TETANUS TOXOID, REDUCED DIPHTHERIA TOXOID AND ACELLULAR PERTUSSIS VACCINE, ADSORBED ANTIGENS
  9. BREO ELLIPTA [Concomitant]
     Active Substance: FLUTICASONE FUROATE\VILANTEROL TRIFENATATE
  10. BUDESONIDE [Concomitant]
     Active Substance: BUDESONIDE
  11. BUPROPION [Concomitant]
     Active Substance: BUPROPION
  12. BUSPIRONE HCL [Concomitant]
     Active Substance: BUSPIRONE HYDROCHLORIDE
  13. CITALOPRAM [Concomitant]
     Active Substance: CITALOPRAM
  14. CYCLOBENZAPRINE [Concomitant]
     Active Substance: CYCLOBENZAPRINE
  15. DIAZEPAM [Concomitant]
     Active Substance: DIAZEPAM
  16. EPINEPHRINE [Concomitant]
     Active Substance: EPINEPHRINE
  17. ESTRADIOL [Concomitant]
     Active Substance: ESTRADIOL
  18. FLUCONAZOLE [Concomitant]
     Active Substance: FLUCONAZOLE
  19. GABAPENTIN [Concomitant]
     Active Substance: GABAPENTIN
  20. HYDROMORPHONE [Concomitant]
     Active Substance: HYDROMORPHONE
  21. HYDROXYZINE HYDROCHLORIDE [Concomitant]
     Active Substance: HYDROXYZINE HYDROCHLORIDE
  22. ALBUTEROL\IPRATROPIUM [Concomitant]
     Active Substance: ALBUTEROL\IPRATROPIUM
  23. LIDOCAINE [Concomitant]
     Active Substance: LIDOCAINE
  24. LIDOCAINE [Concomitant]
     Active Substance: LIDOCAINE
  25. LORAZEPAM [Concomitant]
     Active Substance: LORAZEPAM
  26. MELOXICAM [Concomitant]
     Active Substance: MELOXICAM
  27. METHYLPREDNISOLONE [Concomitant]
     Active Substance: METHYLPREDNISOLONE
  28. MONTELUKAST [Concomitant]
     Active Substance: MONTELUKAST
  29. ONDANSETRON [Concomitant]
     Active Substance: ONDANSETRON
  30. OXYCODONE [Concomitant]
     Active Substance: OXYCODONE
  31. PAROXETINE [Concomitant]
     Active Substance: PAROXETINE
  32. PHENTERMINE HYDROCHLORIDE [Concomitant]
     Active Substance: PHENTERMINE HYDROCHLORIDE
  33. PREDNISONE [Concomitant]
     Active Substance: PREDNISONE
  34. PREGABALIN [Concomitant]
     Active Substance: PREGABALIN
  35. PREGABALIN [Concomitant]
     Active Substance: PREGABALIN
  36. PRIVIGEN [Concomitant]
     Active Substance: HUMAN IMMUNOGLOBULIN G
     Route: 065
  37. PROCHLORPERAZINE [Concomitant]
     Active Substance: PROCHLORPERAZINE
  38. PROMETHAZINE [Concomitant]
     Active Substance: PROMETHAZINE HYDROCHLORIDE
  39. SYMBICORT [Concomitant]
     Active Substance: BUDESONIDE\FORMOTEROL FUMARATE DIHYDRATE
  40. TRAMADOL HCL [Concomitant]
     Active Substance: TRAMADOL HYDROCHLORIDE
  41. TRIAMCINOLONE [Concomitant]
     Active Substance: TRIAMCINOLONE
  42. VALACYCLOVIR [Concomitant]
     Active Substance: VALACYCLOVIR HYDROCHLORIDE
  43. VALACYCLOVIR [Concomitant]
     Active Substance: VALACYCLOVIR HYDROCHLORIDE
  44. VENLAFAXINE [Concomitant]
     Active Substance: VENLAFAXINE HYDROCHLORIDE
  45. VENLAFAXINE [Concomitant]
     Active Substance: VENLAFAXINE HYDROCHLORIDE
  46. VITAMIN D [Concomitant]
     Active Substance: VITAMIN D NOS

REACTIONS (2)
  - Fatigue [Not Recovered/Not Resolved]
  - Infusion site pruritus [Not Recovered/Not Resolved]
